FAERS Safety Report 7045968-2 (Version None)
Quarter: 2010Q4

REPORT INFORMATION
  Report Type: 
  Country: None (occurrence: None)
  Receive Date: 20101014
  Receipt Date: 20101011
  Transmission Date: 20110411
  Serious: Yes (Other)
  Sender: FDA-Public Use
  Company Number: US-PFIZER INC-2010101426

PATIENT
  Sex: Female

DRUGS (5)
  1. CHANTIX [Suspect]
     Indication: SMOKING CESSATION THERAPY
     Dosage: UNK
     Dates: start: 20080801, end: 20081001
  2. YAZ [Concomitant]
     Indication: CONTRACEPTION
     Dosage: UNK
     Dates: start: 20080401, end: 20090801
  3. ACETAMINOPHEN W/ CODEINE [Concomitant]
     Indication: TOOTHACHE
     Dosage: UNK
     Dates: start: 20050201, end: 20081101
  4. ACETAMINOPHEN W/ CODEINE [Concomitant]
     Indication: BACK PAIN
  5. ACETAMINOPHEN W/ CODEINE [Concomitant]
     Indication: NECK PAIN

REACTIONS (6)
  - ANGER [None]
  - ANXIETY [None]
  - DEPRESSION [None]
  - MENTAL DISORDER [None]
  - PANIC ATTACK [None]
  - SUICIDE ATTEMPT [None]
